FAERS Safety Report 6113206-0 (Version None)
Quarter: 2009Q1

REPORT INFORMATION
  Report Type: 
  Country: None (occurrence: None)
  Receive Date: 20090312
  Receipt Date: 20090304
  Transmission Date: 20090719
  Serious: No
  Sender: FDA-Public Use
  Company Number: DE-AVENTIS-200811241DE

PATIENT
  Age: 28 Year
  Sex: Female

DRUGS (5)
  1. ARAVA [Suspect]
     Indication: RHEUMATOID ARTHRITIS
     Route: 048
     Dates: start: 20060501, end: 20080204
  2. QUANTALAN [Concomitant]
     Indication: DRUG DETOXIFICATION
     Route: 048
     Dates: start: 20080226, end: 20080308
  3. CHARCOAL [Concomitant]
     Indication: DRUG DETOXIFICATION
     Route: 048
     Dates: start: 20080226, end: 20080308
  4. DECORTIN H [Concomitant]
     Indication: RHEUMATOID ARTHRITIS
     Route: 048
     Dates: start: 20080408
  5. FOLINIC ACID [Concomitant]
     Indication: PROPHYLAXIS
     Route: 048
     Dates: start: 20060501

REACTIONS (1)
  - DRUG EXPOSURE BEFORE PREGNANCY [None]
